FAERS Safety Report 10262425 (Version 4)
Quarter: 2015Q3

REPORT INFORMATION
  Report Type: Spontaneous
  Country: DK (occurrence: DK)
  Receive Date: 20140626
  Receipt Date: 20150908
  Transmission Date: 20151125
  Serious: Yes (Death, Hospitalization)
  Sender: FDA-Public Use
  Company Number: DK-ASTRAZENECA-2014SE45193

PATIENT
  Age: 30134 Day
  Sex: Male

DRUGS (8)
  1. INSULIN [Concomitant]
     Active Substance: INSULIN NOS
  2. CARVEDILOL. [Concomitant]
     Active Substance: CARVEDILOL
  3. ALENDRONATE [Concomitant]
     Active Substance: ALENDRONATE SODIUM
  4. RAMIPRIL. [Concomitant]
     Active Substance: RAMIPRIL
  5. BRILIQUE [Suspect]
     Active Substance: TICAGRELOR
     Indication: THROMBOSIS PROPHYLAXIS
     Route: 048
     Dates: start: 20131225, end: 20140206
  6. HJERDYL [Suspect]
     Active Substance: ASPIRIN
     Indication: THROMBOSIS PROPHYLAXIS
     Route: 048
  7. ZARATOR [Concomitant]
     Active Substance: ATORVASTATIN CALCIUM
  8. BRILIQUE [Suspect]
     Active Substance: TICAGRELOR
     Indication: MYOCARDIAL INFARCTION
     Route: 048
     Dates: start: 20131225, end: 20140206

REACTIONS (3)
  - Acute kidney injury [Fatal]
  - Iron deficiency anaemia [Unknown]
  - Therapy cessation [Fatal]

NARRATIVE: CASE EVENT DATE: 20140128
